FAERS Safety Report 4939924-5 (Version None)
Quarter: 2006Q1

REPORT INFORMATION
  Report Type: 
  Country: None (occurrence: None)
  Receive Date: 20060310
  Receipt Date: 20060214
  Transmission Date: 20060701
  Serious: Yes (Other)
  Sender: FDA-Public Use
  Company Number: JP-JPN-A200600627

PATIENT
  Age: 56 Year
  Sex: Male
  Weight: 55 kg

DRUGS (18)
  1. ZOVIRAX [Suspect]
     Indication: ENCEPHALITIS HERPES
     Dosage: 500MG PER DAY
     Route: 042
     Dates: start: 20060206, end: 20060208
  2. MEROPEN [Suspect]
     Indication: ENCEPHALITIS
     Dosage: .5G TWICE PER DAY
     Route: 042
     Dates: start: 20060204, end: 20060212
  3. BANAN [Suspect]
     Indication: ENCEPHALITIS
     Dosage: 100MG TWICE PER DAY
     Route: 048
     Dates: start: 20060204, end: 20060206
  4. GASTER [Suspect]
     Dosage: .5G PER DAY
     Route: 048
     Dates: start: 20050901
  5. URALYT [Concomitant]
     Dosage: 3U PER DAY
     Route: 048
     Dates: start: 20050901
  6. PREDONINE [Concomitant]
     Indication: GLOMERULONEPHRITIS RAPIDLY PROGRESSIVE
     Dosage: 15MG PER DAY
     Route: 048
     Dates: start: 20060201
  7. IMMUNE GLOBULIN INTRAVENOUS (HUMAN) [Concomitant]
     Indication: ENCEPHALITIS
     Dosage: 5G PER DAY
     Route: 042
     Dates: start: 20060206, end: 20060210
  8. PL [Concomitant]
     Indication: ENCEPHALITIS
     Dosage: 3G PER DAY
     Route: 048
     Dates: start: 20060204, end: 20060206
  9. DASEN [Concomitant]
     Indication: ENCEPHALITIS
     Dosage: 30MG PER DAY
     Route: 048
     Dates: start: 20060204, end: 20060206
  10. COTRIM [Concomitant]
     Indication: INFECTION PROPHYLAXIS
     Dosage: 1U PER DAY
     Route: 048
     Dates: start: 20060201
  11. LONGES [Concomitant]
     Indication: HYPERTENSION
     Dosage: 5MG PER DAY
     Route: 048
     Dates: start: 20050901
  12. NU-LOTAN [Concomitant]
     Indication: HYPERTENSION
     Dosage: 50MG PER DAY
     Route: 048
     Dates: start: 20050901
  13. ALFAROL [Concomitant]
     Indication: OSTEOPOROSIS
     Dosage: .5MCG PER DAY
     Route: 048
     Dates: start: 20050901
  14. LIPITOR [Concomitant]
     Dosage: 10MG PER DAY
     Route: 048
     Dates: start: 20050901
  15. ENDOXAN [Concomitant]
     Indication: GLOMERULONEPHRITIS RAPIDLY PROGRESSIVE
     Dosage: 100MG PER DAY
     Route: 048
     Dates: start: 20051229, end: 20060206
  16. ASPENON [Concomitant]
     Indication: TACHYCARDIA
     Dosage: 40MG PER DAY
     Route: 048
     Dates: start: 20050901
  17. COMELIAN [Concomitant]
     Indication: GLOMERULONEPHRITIS RAPIDLY PROGRESSIVE
     Dosage: 300MG PER DAY
     Route: 048
     Dates: start: 20050901
  18. ZYLORIC [Concomitant]
     Dosage: 50MG PER DAY
     Route: 048
     Dates: start: 20050901

REACTIONS (10)
  - ALANINE AMINOTRANSFERASE DECREASED [None]
  - ASPARTATE AMINOTRANSFERASE DECREASED [None]
  - BLOOD CREATININE INCREASED [None]
  - BLOOD UREA INCREASED [None]
  - GRANULOCYTOPENIA [None]
  - HAEMATOCRIT DECREASED [None]
  - HAEMOGLOBIN DECREASED [None]
  - MONOCYTE COUNT INCREASED [None]
  - NEUTROPHIL COUNT DECREASED [None]
  - WHITE BLOOD CELL COUNT DECREASED [None]
